FAERS Safety Report 9279965 (Version 1)
Quarter: 2013Q2

REPORT INFORMATION
  Report Type: Report from Study
  Country: CA (occurrence: CA)
  Receive Date: 20130509
  Receipt Date: 20130509
  Transmission Date: 20140414
  Serious: Yes (Other)
  Sender: FDA-Public Use
  Company Number: CA-ROCHE-1220750

PATIENT
  Sex: Female
  Weight: 51.7 kg

DRUGS (5)
  1. AVASTIN [Suspect]
     Indication: GLIOBLASTOMA
     Route: 042
     Dates: start: 20120808, end: 20130416
  2. DILANTIN [Concomitant]
  3. DEXAMETHASONE [Concomitant]
  4. ZANTAC [Concomitant]
  5. CLOBAZAM [Concomitant]

REACTIONS (1)
  - Disease progression [Unknown]
